FAERS Safety Report 6057638-8 (Version None)
Quarter: 2009Q1

REPORT INFORMATION
  Report Type: 
  Country: None (occurrence: None)
  Receive Date: 20090129
  Receipt Date: 20090116
  Transmission Date: 20090719
  Serious: Yes (Hospitalization)
  Sender: FDA-Public Use
  Company Number: GB-ROCHE-603692

PATIENT
  Sex: Male

DRUGS (2)
  1. PEGASYS [Suspect]
     Indication: HEPATITIS C
     Dosage: 600 MCG TOTAL, FREQUENCY REPORTED AS 3X.
     Route: 065
     Dates: start: 20081215
  2. RIBAVIRIN [Concomitant]
     Indication: HEPATITIS C
     Route: 048

REACTIONS (3)
  - INJURY [None]
  - OVERDOSE [None]
  - WHITE BLOOD CELL COUNT DECREASED [None]
